FAERS Safety Report 8570535-9 (Version None)
Quarter: 2012Q3

REPORT INFORMATION
  Report Type: 
  Country: None (occurrence: None)
  Receive Date: 20120803
  Receipt Date: 20120724
  Transmission Date: 20120928
  Serious: No
  Sender: FDA-Public Use
  Company Number: US-ASTRAZENECA-2012SE52728

PATIENT
  Age: 52 Year
  Sex: Female
  Weight: 104.3 kg

DRUGS (2)
  1. SYMBICORT [Suspect]
     Indication: ASTHMA
     Dosage: 320 MCG, TWO PUFFS, BID
     Route: 055
     Dates: start: 20090101
  2. SYMBICORT [Suspect]
     Indication: CHRONIC OBSTRUCTIVE PULMONARY DISEASE
     Dosage: 320 MCG, TWO PUFFS, BID
     Route: 055
     Dates: start: 20090101

REACTIONS (5)
  - LIMB DISCOMFORT [None]
  - DRUG DOSE OMISSION [None]
  - DIABETES MELLITUS [None]
  - BLOOD CHOLESTEROL INCREASED [None]
  - COUGH [None]
